FAERS Safety Report 17995719 (Version 1)
Quarter: 2020Q3

REPORT INFORMATION
  Report Type: Spontaneous
  Country: US (occurrence: US)
  Receive Date: 20200708
  Receipt Date: 20200708
  Transmission Date: 20201103
  Serious: Yes (Other)
  Sender: FDA-Public Use
  Company Number: US-SA-2020SA173505

PATIENT

DRUGS (12)
  1. TRAMADOL. [Concomitant]
     Active Substance: TRAMADOL
     Dosage: 25 MG, BID
  2. PLAVIX [Suspect]
     Active Substance: CLOPIDOGREL BISULFATE
  3. MORPHINE [Concomitant]
     Active Substance: MORPHINE
     Dosage: 75 MG, QD
  4. ALDACTONE [Concomitant]
     Active Substance: SPIRONOLACTONE
  5. ELIQUIS [Suspect]
     Active Substance: APIXABAN
     Indication: CEREBROVASCULAR ACCIDENT
     Dosage: UNK UNK, BID
     Route: 048
  6. BABY ASPIRIN [Concomitant]
     Active Substance: ASPIRIN
  7. POTASSIUM [Concomitant]
     Active Substance: POTASSIUM
  8. LANTUS [Concomitant]
     Active Substance: INSULIN GLARGINE
     Dosage: 60 DF
  9. BISOPROLOL [Concomitant]
     Active Substance: BISOPROLOL
     Dosage: 1 DF, QD
  10. AMLODIPINE BESYLATE. [Concomitant]
     Active Substance: AMLODIPINE BESYLATE
     Dosage: 5 MG
  11. ATORVASTATIN [Concomitant]
     Active Substance: ATORVASTATIN
  12. OMEPRAZOLE. [Concomitant]
     Active Substance: OMEPRAZOLE
     Dosage: 3 DF, QD

REACTIONS (4)
  - Headache [Unknown]
  - Contusion [Unknown]
  - Neck pain [Unknown]
  - Cerebrovascular accident [Unknown]

NARRATIVE: CASE EVENT DATE: 201905
